FAERS Safety Report 9280528 (Version 2)
Quarter: 2013Q4

REPORT INFORMATION
  Report Type: Spontaneous
  Country: GB (occurrence: GB)
  Receive Date: 20130509
  Receipt Date: 20131029
  Transmission Date: 20140711
  Serious: Yes (Other)
  Sender: FDA-Public Use
  Company Number: GB-MYLANLABS-2013S1009217

PATIENT
  Age: 27 Year
  Sex: Male
  Weight: 64 kg

DRUGS (7)
  1. NAPROXEN [Suspect]
     Indication: BACK PAIN
  2. NAPROXEN [Suspect]
     Indication: PAIN IN EXTREMITY
  3. IBUPROFEN [Suspect]
     Indication: BACK PAIN
  4. IBUPROFEN [Suspect]
     Indication: PAIN IN EXTREMITY
  5. LAMOTRIGINE [Concomitant]
     Indication: EPILEPSY
     Dates: start: 201209
  6. OXYCONTIN [Concomitant]
     Indication: PRODUCT USED FOR UNKNOWN INDICATION
     Dates: start: 201209
  7. OXYNORM [Concomitant]
     Indication: PRODUCT USED FOR UNKNOWN INDICATION
     Dates: start: 201209

REACTIONS (5)
  - Feeling abnormal [Recovered/Resolved]
  - Epilepsy [Recovered/Resolved]
  - Balance disorder [Recovered/Resolved]
  - Tremor [Recovered/Resolved]
  - Chills [Recovered/Resolved]
